FAERS Safety Report 23651300 (Version 1)
Quarter: 2024Q1

REPORT INFORMATION
  Report Type: Report from Study
  Country: US (occurrence: US)
  Receive Date: 20240320
  Receipt Date: 20240320
  Transmission Date: 20240409
  Serious: Yes (Hospitalization)
  Sender: FDA-Public Use
  Company Number: US-ABBVIE-5681581

PATIENT
  Age: 77 Year
  Sex: Male

DRUGS (1)
  1. RINVOQ [Suspect]
     Active Substance: UPADACITINIB
     Indication: Colitis ulcerative
     Route: 048
     Dates: start: 20230822

REACTIONS (5)
  - Urinary tract infection [Unknown]
  - Fall [Unknown]
  - Asthenia [Unknown]
  - Diarrhoea [Unknown]
  - Walking aid user [Unknown]

NARRATIVE: CASE EVENT DATE: 20240310
